FAERS Safety Report 12212497 (Version 1)
Quarter: 2016Q1

REPORT INFORMATION
  Report Type: Spontaneous
  Country: US (occurrence: US)
  Receive Date: 20160326
  Receipt Date: 20160326
  Transmission Date: 20160526
  Serious: No
  Sender: FDA-Public Use
  Company Number: US-IMPAX LABORATORIES, INC-2015COR00201

PATIENT
  Sex: Female

DRUGS (2)
  1. ALPRAZOLAM ER [Suspect]
     Active Substance: ALPRAZOLAM
  2. ZOFRAN [Concomitant]
     Active Substance: ONDANSETRON HYDROCHLORIDE
     Dosage: 4 MG, UNK

REACTIONS (2)
  - Hangover [Unknown]
  - Nightmare [Unknown]
